FAERS Safety Report 5743574-0 (Version None)
Quarter: 2008Q2

REPORT INFORMATION
  Report Type: 
  Country: None (occurrence: None)
  Receive Date: 20080520
  Receipt Date: 20080512
  Transmission Date: 20081010
  Serious: Yes (Hospitalization, Disabling)
  Sender: FDA-Public Use
  Company Number: PHHY2008JP05876

PATIENT
  Age: 60 Year
  Sex: Female

DRUGS (3)
  1. PREDNISOLONE [Suspect]
     Indication: MICROSCOPIC POLYANGIITIS
     Dates: start: 20020101
  2. ENDOXAN [Suspect]
     Indication: MICROSCOPIC POLYANGIITIS
     Dates: start: 20020101, end: 20030501
  3. CYCLOSPORINE [Suspect]
     Indication: MICROSCOPIC POLYANGIITIS
     Dates: start: 20030501

REACTIONS (8)
  - DYSURIA [None]
  - HYPERTROPHY [None]
  - MONOPLEGIA [None]
  - PERIPHERAL PARALYSIS [None]
  - RADIOTHERAPY [None]
  - SPINAL COMPRESSION FRACTURE [None]
  - SPINAL LAMINECTOMY [None]
  - T-CELL LYMPHOMA [None]
